FAERS Safety Report 8223810-1 (Version None)
Quarter: 2012Q1

REPORT INFORMATION
  Report Type: 
  Country: None (occurrence: None)
  Receive Date: 20120321
  Receipt Date: 20120321
  Transmission Date: 20120608
  Serious: Yes (Other)
  Sender: FDA-Public Use
  Company Number: None

PATIENT
  Age: 37 Year
  Sex: Male
  Weight: 106.59 kg

DRUGS (2)
  1. ATRIPLA [Suspect]
     Indication: HIV INFECTION
     Dosage: 1 PILL
     Route: 048
     Dates: start: 20070101, end: 20120319
  2. ATRIPLA [Suspect]

REACTIONS (10)
  - FEELING ABNORMAL [None]
  - HEART RATE DECREASED [None]
  - PRODUCT QUALITY ISSUE [None]
  - INSOMNIA [None]
  - HYPOAESTHESIA [None]
  - NEUROPATHY PERIPHERAL [None]
  - DISORIENTATION [None]
  - PARAESTHESIA [None]
  - HEART RATE IRREGULAR [None]
  - PALPITATIONS [None]
